FAERS Safety Report 21126158 (Version 5)
Quarter: 2023Q4

REPORT INFORMATION
  Report Type: Spontaneous
  Country: US (occurrence: US)
  Receive Date: 20220725
  Receipt Date: 20231013
  Transmission Date: 20240110
  Serious: Yes (Other)
  Sender: FDA-Public Use
  Company Number: US-PFIZER INC-PV202200027322

PATIENT
  Age: 72 Year
  Sex: Female

DRUGS (1)
  1. XELJANZ XR [Suspect]
     Active Substance: TOFACITINIB CITRATE
     Dosage: 11 MG, 1X/DAY

REACTIONS (7)
  - Knee operation [Unknown]
  - Drug ineffective [Unknown]
  - Hypertension [Unknown]
  - Memory impairment [Unknown]
  - Muscle spasms [Unknown]
  - Pruritus [Unknown]
  - Pain [Unknown]
